FAERS Safety Report 20815073 (Version 1)
Quarter: 2022Q2

REPORT INFORMATION
  Report Type: Spontaneous
  Country: US (occurrence: US)
  Receive Date: 20220511
  Receipt Date: 20220511
  Transmission Date: 20220720
  Serious: No
  Sender: FDA-Public Use
  Company Number: US-Sprout Pharmaceuticals, Inc.-2022SP000110

PATIENT
  Age: 76 Year
  Sex: Male

DRUGS (2)
  1. ADDYI [Suspect]
     Active Substance: FLIBANSERIN
     Indication: Erectile dysfunction
     Route: 048
     Dates: start: 20220424, end: 20220426
  2. ADDYI [Suspect]
     Active Substance: FLIBANSERIN
     Indication: Ejaculation disorder

REACTIONS (5)
  - Depressed level of consciousness [Recovered/Resolved]
  - Product use in unapproved indication [Recovered/Resolved]
  - Confusional state [Recovered/Resolved]
  - Lethargy [Recovered/Resolved]
  - Hypotension [Recovered/Resolved]

NARRATIVE: CASE EVENT DATE: 20220424
